FAERS Safety Report 5916398-9 (Version None)
Quarter: 2008Q4

REPORT INFORMATION
  Report Type: 
  Country: None (occurrence: None)
  Receive Date: 20081013
  Receipt Date: 20080908
  Transmission Date: 20090506
  Serious: No
  Sender: FDA-Public Use
  Company Number: US-BAYER-200833085NA

PATIENT
  Sex: Female

DRUGS (1)
  1. MIRENA [Suspect]
     Indication: DRUG USE FOR UNKNOWN INDICATION
     Route: 015
     Dates: start: 20080707

REACTIONS (3)
  - ABDOMINAL PAIN [None]
  - GENITAL HAEMORRHAGE [None]
  - POST PROCEDURAL HAEMORRHAGE [None]
